FAERS Safety Report 7501652-X (Version None)
Quarter: 2011Q2

REPORT INFORMATION
  Report Type: 
  Country: None (occurrence: None)
  Receive Date: 20110524
  Receipt Date: 20110512
  Transmission Date: 20111010
  Serious: Yes (Other)
  Sender: FDA-Public Use
  Company Number: FR-ELI_LILLY_AND_COMPANY-FR201103004904

PATIENT
  Age: 40 Year
  Sex: Male
  Weight: 56 kg

DRUGS (4)
  1. ALCOHOL [Concomitant]
  2. ALPRAZOLAM [Concomitant]
     Indication: ANXIETY
     Dosage: UNK, UNKNOWN
     Route: 048
     Dates: start: 20100101
  3. OLANZAPINE [Suspect]
     Indication: SCHIZOPHRENIA
     Dosage: 300 MG, EVERY 2 WEEKS
     Route: 030
     Dates: start: 20110217
  4. ZYPREXA [Concomitant]
     Dosage: UNK, UNKNOWN

REACTIONS (3)
  - CONFUSIONAL STATE [None]
  - INCOHERENT [None]
  - AMNESIA [None]
